FAERS Safety Report 5867716-1 (Version None)
Quarter: 2008Q3

REPORT INFORMATION
  Report Type: 
  Country: None (occurrence: None)
  Receive Date: 20080902
  Receipt Date: 20080219
  Transmission Date: 20090109
  Serious: No
  Sender: FDA-Public Use
  Company Number: US-ABBOTT-08P-163-0438950-00

PATIENT
  Age: 82 Year

DRUGS (2)
  1. DIVALPROEX SODIUM EXTENDED RELEASE [Suspect]
     Indication: BEHAVIOURAL AND PSYCHIATRIC SYMPTOMS OF DEMENTIA
  2. DIVALPROEX SODIUM EXTENDED RELEASE [Suspect]

REACTIONS (2)
  - DECREASED APPETITE [None]
  - SOMNOLENCE [None]
